FAERS Safety Report 4558455-8 (Version None)
Quarter: 2005Q1

REPORT INFORMATION
  Report Type: 
  Country: None (occurrence: None)
  Receive Date: 20050121
  Receipt Date: 20030605
  Transmission Date: 20050727
  Serious: Yes (Hospitalization, Disabling)
  Sender: FDA-Public Use
  Company Number: US-MERCK-0306USA00705

PATIENT
  Age: 50 Year
  Sex: Female
  Weight: 103 kg

DRUGS (12)
  1. VIOXX [Suspect]
     Route: 048
  2. SYNTHROID [Concomitant]
     Route: 048
  3. ELAVIL [Concomitant]
     Route: 048
  4. RESTORIL [Concomitant]
     Route: 048
  5. FIORINAL [Concomitant]
     Route: 065
  6. FELODIPINE [Concomitant]
     Route: 065
  7. MAXZIDE [Concomitant]
     Route: 065
  8. LOTENSIN [Concomitant]
     Route: 065
  9. PREMARIN [Concomitant]
     Route: 065
  10. LABETALOL HYDROCHLORIDE [Concomitant]
     Route: 065
  11. FIORICET TABLETS [Concomitant]
     Route: 065
  12. FLEXERIL [Concomitant]
     Route: 065

REACTIONS (33)
  - ABDOMINAL DISTENSION [None]
  - ABDOMINAL MASS [None]
  - ABDOMINAL PANNICULECTOMY [None]
  - ADVERSE EVENT [None]
  - BACK PAIN [None]
  - BREAST NEOPLASM [None]
  - BRONCHITIS [None]
  - DIVERTICULUM DUODENAL [None]
  - DYSPEPSIA [None]
  - DYSPNOEA EXERTIONAL [None]
  - HAEMORRHOIDS [None]
  - HYPERTENSION [None]
  - HYPOAESTHESIA [None]
  - HYPOVENTILATION [None]
  - INCISION SITE COMPLICATION [None]
  - INTRADUCTAL PAPILLOMA OF BREAST [None]
  - LOBAR PNEUMONIA [None]
  - LUMBAR VERTEBRAL FRACTURE [None]
  - MIGRAINE [None]
  - MUSCLE SPASMS [None]
  - OSTEITIS DEFORMANS [None]
  - PAIN [None]
  - PALPITATIONS [None]
  - PANCREATIC MASS [None]
  - PIRIFORMIS SYNDROME [None]
  - POLYTRAUMATISM [None]
  - RETROSTERNAL FLUID EVACUATION [None]
  - SLEEP DISORDER [None]
  - TACHYCARDIA [None]
  - URINARY INCONTINENCE [None]
  - URINARY TRACT INFECTION [None]
  - VAGINITIS ATROPHIC [None]
  - VISION BLURRED [None]
